FAERS Safety Report 8022667-1 (Version None)
Quarter: 2012Q1

REPORT INFORMATION
  Report Type: 
  Country: None (occurrence: None)
  Receive Date: 20120104
  Receipt Date: 20111226
  Transmission Date: 20120608
  Serious: Yes (Other)
  Sender: FDA-Public Use
  Company Number: US-ROCHE-1026344

PATIENT

DRUGS (2)
  1. XELODA [Suspect]
     Indication: BILIARY CANCER METASTATIC
     Dosage: DAY 1-14
     Route: 048
  2. GEMCITABINE HYDROCHLORIDE [Suspect]
     Indication: BILIARY CANCER METASTATIC
     Dosage: DAY 1 AND 8
     Route: 042

REACTIONS (21)
  - HEPATIC FUNCTION ABNORMAL [None]
  - FATIGUE [None]
  - MYALGIA [None]
  - BLOOD ALKALINE PHOSPHATASE INCREASED [None]
  - EMBOLISM [None]
  - LEUKOPENIA [None]
  - THROMBOCYTOPENIA [None]
  - BONE MARROW FAILURE [None]
  - ARRHYTHMIA [None]
  - SKIN TOXICITY [None]
  - PAIN [None]
  - GASTROINTESTINAL TOXICITY [None]
  - HAEMORRHAGE [None]
  - INFECTION [None]
  - METABOLIC DISORDER [None]
  - DIARRHOEA [None]
  - THROMBOSIS [None]
  - NEUTROPENIA [None]
  - MUSCULOSKELETAL DISORDER [None]
  - ANGIOPATHY [None]
  - PALMAR-PLANTAR ERYTHRODYSAESTHESIA SYNDROME [None]
